FAERS Safety Report 10945220 (Version 1)
Quarter: 2015Q1

REPORT INFORMATION
  Report Type: Spontaneous
  Country: US (occurrence: US)
  Receive Date: 20150323
  Receipt Date: 20150323
  Transmission Date: 20150721
  Serious: No
  Sender: FDA-Public Use
  Company Number: US-ELI_LILLY_AND_COMPANY-US201502008174

PATIENT
  Age: 44 Year
  Sex: Female

DRUGS (2)
  1. BYDUREON [Concomitant]
     Active Substance: EXENATIDE
     Dosage: UNK
     Dates: end: 20150222
  2. TRULICITY [Suspect]
     Active Substance: DULAGLUTIDE
     Indication: TYPE 2 DIABETES MELLITUS
     Dosage: 1.25 MG, WEEKLY (1/W)
     Route: 065
     Dates: start: 20150222

REACTIONS (3)
  - Blood glucose increased [Unknown]
  - Nausea [Unknown]
  - Drug ineffective [Unknown]

NARRATIVE: CASE EVENT DATE: 20150223
